FAERS Safety Report 5676885-8 (Version None)
Quarter: 2008Q1

REPORT INFORMATION
  Report Type: 
  Country: None (occurrence: None)
  Receive Date: 20080324
  Receipt Date: 20080318
  Transmission Date: 20080703
  Serious: Yes (Life-Threatening)
  Sender: FDA-Public Use
  Company Number: CA-MERCK-0802CAN00111

PATIENT
  Age: 49 Year
  Sex: Female

DRUGS (6)
  1. MONTELUKAST SODIUM [Suspect]
     Indication: COUGH
     Route: 048
     Dates: start: 20071201, end: 20080109
  2. MONTELUKAST SODIUM [Suspect]
     Indication: BRONCHIAL HYPERREACTIVITY
     Route: 048
     Dates: start: 20071201, end: 20080109
  3. WARFARIN SODIUM [Concomitant]
     Route: 065
  4. ASPIRIN [Concomitant]
     Route: 065
  5. CELECOXIB [Concomitant]
     Route: 065
  6. BUPROPION HYDROCHLORIDE [Concomitant]
     Route: 065

REACTIONS (1)
  - ARRHYTHMIA [None]
